FAERS Safety Report 19360023 (Version 1)
Quarter: 2021Q2

REPORT INFORMATION
  Report Type: Spontaneous
  Country: RU (occurrence: RU)
  Receive Date: 20210601
  Receipt Date: 20210601
  Transmission Date: 20210717
  Serious: Yes (Other)
  Sender: FDA-Public Use
  Company Number: RU-ROCHE-2837254

PATIENT
  Age: 65 Year
  Sex: Male

DRUGS (2)
  1. BEVACIZUMAB. [Suspect]
     Active Substance: BEVACIZUMAB
     Indication: HEPATOCELLULAR CARCINOMA
     Dosage: 2ND COURSE DATED 12/FEB/2021, 3RD COURSE DATED 26/MAR/2021, 4TH COURSE DATED 01/APR/2021, 6TH COURSE
     Route: 065
     Dates: start: 20210112
  2. ATEZOLIZUMAB. [Suspect]
     Active Substance: ATEZOLIZUMAB
     Indication: HEPATOCELLULAR CARCINOMA
     Dosage: 2ND COURSE DATED 12/FEB/2021, 3RD COURSE DATED 26/MAR/2021, 4TH COURSE DATED 01/APR/2021, 6TH COURSE
     Route: 041
     Dates: start: 20210112

REACTIONS (4)
  - Hepatic cirrhosis [Unknown]
  - Varices oesophageal [Unknown]
  - Hepatitis C [Unknown]
  - Blood pressure increased [Unknown]
